FAERS Safety Report 12208104 (Version 1)
Quarter: 2016Q1

REPORT INFORMATION
  Report Type: Spontaneous
  Country: US (occurrence: US)
  Receive Date: 20160324
  Receipt Date: 20160324
  Transmission Date: 20160526
  Serious: No
  Sender: FDA-Public Use
  Company Number: US-SHIONOGI, INC-2015000826

PATIENT
  Sex: Female

DRUGS (1)
  1. NISOLDIPINE ER [Suspect]
     Active Substance: NISOLDIPINE
     Indication: PRODUCT USED FOR UNKNOWN INDICATION
     Dosage: 34 MG
     Route: 065

REACTIONS (1)
  - Choking [Unknown]
